FAERS Safety Report 19592463 (Version 1)
Quarter: 2021Q3

REPORT INFORMATION
  Report Type: Spontaneous
  Country: US (occurrence: US)
  Receive Date: 20210721
  Receipt Date: 20210721
  Transmission Date: 20211014
  Serious: Yes (Hospitalization)
  Sender: FDA-Public Use
  Company Number: None

PATIENT
  Sex: Female

DRUGS (1)
  1. INLYTA [Suspect]
     Active Substance: AXITINIB
     Indication: RENAL CANCER
     Route: 048
     Dates: start: 20210616, end: 20210721

REACTIONS (5)
  - Asthenia [None]
  - Headache [None]
  - Blood pressure increased [None]
  - Cerebrovascular accident [None]
  - Balance disorder [None]
